FAERS Safety Report 6252351-6 (Version None)
Quarter: 2009Q2

REPORT INFORMATION
  Report Type: 
  Country: None (occurrence: None)
  Receive Date: 20090629
  Receipt Date: 20090629
  Transmission Date: 20091009
  Serious: Yes (Other)
  Sender: FDA-Public Use
  Company Number: None

PATIENT
  Sex: Male
  Weight: 81.6475 kg

DRUGS (1)
  1. LEVITIRACETAM 750MG MYLAN [Suspect]
     Indication: CONVULSION
     Dosage: 750MG BID ORAL
     Route: 048
     Dates: start: 20090301, end: 20090601

REACTIONS (2)
  - CONVULSION [None]
  - DRUG INEFFECTIVE [None]
